FAERS Safety Report 8947956 (Version 2)
Quarter: 2013Q1

REPORT INFORMATION
  Report Type: Spontaneous
  Country: US (occurrence: US)
  Receive Date: 20121204
  Receipt Date: 20130304
  Transmission Date: 20140127
  Serious: No
  Sender: FDA-Public Use
  Company Number: US-PFIZER INC-2012300690

PATIENT
  Age: 60 Year
  Sex: Female
  Weight: 58.96 kg

DRUGS (1)
  1. PREMARIN [Suspect]
     Indication: HOT FLUSH
     Dosage: 0.3 MG, DAILY

REACTIONS (2)
  - Product quality issue [Unknown]
  - Drug ineffective [Unknown]
